FAERS Safety Report 15703043 (Version 5)
Quarter: 2019Q2

REPORT INFORMATION
  Report Type: Spontaneous
  Country: JP (occurrence: JP)
  Receive Date: 20181210
  Receipt Date: 20190403
  Transmission Date: 20190711
  Serious: Yes (Death, Hospitalization, Other)
  Sender: FDA-Public Use
  Company Number: JP-BRISTOL-MYERS SQUIBB COMPANY-BMS-2018-113891

PATIENT
  Age: 78 Year
  Sex: Male
  Weight: 63 kg

DRUGS (5)
  1. PROGRAF [Suspect]
     Active Substance: TACROLIMUS\TACROLIMUS ANHYDROUS
     Indication: RHEUMATOID ARTHRITIS
     Dosage: 1.0 MG, QD
     Route: 048
     Dates: start: 20150821, end: 20170209
  2. PROGRAF [Suspect]
     Active Substance: TACROLIMUS\TACROLIMUS ANHYDROUS
     Indication: PRODUCT USED FOR UNKNOWN INDICATION
     Dosage: 1.5 MG, QD
     Route: 048
     Dates: start: 20170210, end: 20181130
  3. ISONARIF [Concomitant]
     Active Substance: ISONIAZID\RIFAMPIN
     Indication: RHEUMATOID ARTHRITIS
     Dosage: 300 MG, UNK
     Route: 048
     Dates: start: 20150821, end: 20181130
  4. ORENCIA [Suspect]
     Active Substance: ABATACEPT
     Indication: RHEUMATOID ARTHRITIS
     Dosage: 125 MG, QWK
     Route: 058
     Dates: start: 20160412, end: 20181130
  5. LOXONIN [Concomitant]
     Active Substance: LOXOPROFEN SODIUM
     Indication: RHEUMATOID ARTHRITIS
     Dosage: 60 MG, QD
     Route: 048
     Dates: start: 20150821, end: 20181130

REACTIONS (1)
  - T-cell prolymphocytic leukaemia [Fatal]

NARRATIVE: CASE EVENT DATE: 20181130
